FAERS Safety Report 4996685-1 (Version None)
Quarter: 2006Q2

REPORT INFORMATION
  Report Type: 
  Country: None (occurrence: None)
  Receive Date: 20060509
  Receipt Date: 20060503
  Transmission Date: 20061013
  Serious: Yes (Other)
  Sender: FDA-Public Use
  Company Number: AU-MERCK-0605AUS00056

PATIENT
  Age: 69 Year
  Sex: Female

DRUGS (10)
  1. EDECRIN [Suspect]
     Route: 065
  2. AZITHROMYCIN [Suspect]
     Route: 065
  3. VANCOMYCIN HYDROCHLORIDE [Suspect]
     Route: 065
  4. ROXITHROMYCIN [Suspect]
     Route: 065
  5. CEFTRIAXONE SODIUM [Suspect]
     Route: 065
  6. PIPERACILLIN SODIUM AND TAZOBACTAM SODIUM [Concomitant]
     Route: 065
  7. PIMECLONE HYDROCHLORIDE [Concomitant]
     Route: 065
  8. RANITIDINE HYDROCHLORIDE [Concomitant]
     Route: 065
  9. AMIODARONE HYDROCHLORIDE [Concomitant]
     Route: 065
  10. WARFARIN SODIUM [Concomitant]
     Route: 065

REACTIONS (3)
  - DEAFNESS [None]
  - RENAL FAILURE ACUTE [None]
  - TINNITUS [None]
